FAERS Safety Report 4768081-3 (Version None)
Quarter: 2005Q3

REPORT INFORMATION
  Report Type: 
  Country: None (occurrence: None)
  Receive Date: 20050912
  Receipt Date: 20050912
  Transmission Date: 20060218
  Serious: Yes (Other)
  Sender: FDA-Public Use
  Company Number: None

PATIENT
  Sex: Male
  Weight: 94.3482 kg

DRUGS (2)
  1. ACETAMINOPHEN W/ CODEINE [Suspect]
     Indication: HEADACHE
     Dosage: 1 TABLET AS NEEDED   3 TIMES A DAY   PO
     Route: 048
  2. ACETAMINOPHEN W/ CODEINE [Suspect]
     Indication: INTERVERTEBRAL DISC DISORDER
     Dosage: 1 TABLET AS NEEDED   3 TIMES A DAY   PO
     Route: 048

REACTIONS (8)
  - ANXIETY [None]
  - DRUG EFFECT DECREASED [None]
  - DRY MOUTH [None]
  - HEADACHE [None]
  - INSOMNIA [None]
  - LYMPHADENOPATHY [None]
  - PHARMACEUTICAL PRODUCT COUNTERFEIT [None]
  - POOR QUALITY DRUG ADMINISTERED [None]
